FAERS Safety Report 7206400-9 (Version None)
Quarter: 2011Q1

REPORT INFORMATION
  Report Type: 
  Country: None (occurrence: None)
  Receive Date: 20110103
  Receipt Date: 20110103
  Transmission Date: 20110831
  Serious: Yes (Other)
  Sender: FDA-Public Use
  Company Number: PHHO2009GR13979

PATIENT
  Sex: Male
  Weight: 85 kg

DRUGS (3)
  1. PLACEBO [Suspect]
     Indication: CARCINOID TUMOUR
     Dosage: PLACEBO
     Route: 048
     Dates: start: 20080520
  2. SANDOSTATIN LAR [Suspect]
     Indication: CARCINOID TUMOUR
     Dosage: 1 DF, QMO (30 MG)
     Route: 030
     Dates: start: 20080520, end: 20091029
  3. RAD001C [Suspect]
     Indication: CARCINOID TUMOUR
     Dosage: 10 MG/DAY
     Route: 048
     Dates: end: 20091029

REACTIONS (1)
  - THROMBOCYTOPENIA [None]
